FAERS Safety Report 7825151-0 (Version None)
Quarter: 2011Q4

REPORT INFORMATION
  Report Type: 
  Country: None (occurrence: None)
  Receive Date: 20111019
  Receipt Date: 20111012
  Transmission Date: 20120403
  Serious: Yes (Other)
  Sender: FDA-Public Use
  Company Number: US-JNJFOC-20111005434

PATIENT
  Sex: Female
  Weight: 98.43 kg

DRUGS (4)
  1. SIMPONI [Suspect]
     Indication: RHEUMATOID ARTHRITIS
     Route: 058
     Dates: start: 20091001
  2. SYNTHROID [Concomitant]
     Indication: HYPOTHYROIDISM
     Route: 048
     Dates: start: 20010101
  3. EBASTINE [Concomitant]
     Indication: RHEUMATOID ARTHRITIS
     Route: 048
     Dates: start: 20060101
  4. MAXZIDE [Concomitant]
     Indication: HYPERTENSION
     Route: 048
     Dates: start: 20000101

REACTIONS (3)
  - CHEST PAIN [None]
  - PANIC DISORDER [None]
  - DRUG DOSE OMISSION [None]
